FAERS Safety Report 6407924-4 (Version None)
Quarter: 2009Q4

REPORT INFORMATION
  Report Type: 
  Country: None (occurrence: None)
  Receive Date: 20091016
  Receipt Date: 20091002
  Transmission Date: 20100525
  Serious: Yes (Death, Hospitalization, Disabling, Other)
  Sender: FDA-Public Use
  Company Number: 2008BI011317

PATIENT
  Sex: Male

DRUGS (7)
  1. ZEVALIN [Suspect]
     Indication: DIFFUSE LARGE B-CELL LYMPHOMA
     Dosage: 20 MCI; 1X; IV
     Route: 042
     Dates: start: 20071221, end: 20071221
  2. RITUXIMAB [Concomitant]
  3. CYCLOPHOSPHAMIDE [Concomitant]
  4. DOXORUBICIN C [Concomitant]
  5. VINCRISTINE [Concomitant]
  6. PREDNISONE TAB [Concomitant]
  7. PREV MEDS [Concomitant]

REACTIONS (7)
  - EYE INFECTION [None]
  - HEMIPARESIS [None]
  - ISCHAEMIC STROKE [None]
  - LACUNAR INFARCTION [None]
  - PNEUMONIA ASPIRATION [None]
  - RESPIRATORY DISTRESS [None]
  - SEPSIS [None]
